FAERS Safety Report 4467855-6 (Version None)
Quarter: 2004Q4

REPORT INFORMATION
  Report Type: 
  Country: None (occurrence: None)
  Receive Date: 20041004
  Receipt Date: 20040919
  Transmission Date: 20050328
  Serious: Yes (Death)
  Sender: FDA-Public Use
  Company Number: K200401444

PATIENT
  Age: 26 Year
  Sex: Male

DRUGS (1)
  1. KETALAR [Suspect]

REACTIONS (4)
  - ACCIDENT [None]
  - DRUG TOXICITY [None]
  - HAEMATOMA [None]
  - PULMONARY CONGESTION [None]
